FAERS Safety Report 9735135 (Version 2)
Quarter: 2013Q4

REPORT INFORMATION
  Report Type: Report from Study
  Country: FR (occurrence: FR)
  Receive Date: 20131206
  Receipt Date: 20131206
  Transmission Date: 20140711
  Serious: Yes (Life-Threatening, Hospitalization)
  Sender: FDA-Public Use
  Company Number: FR-PFIZER INC-2013232342

PATIENT
  Age: 71 Year
  Sex: Female
  Weight: 50 kg

DRUGS (11)
  1. ATGAM [Suspect]
     Indication: BONE MARROW FAILURE
     Dosage: 40 MG/KG, DAILY
     Route: 042
     Dates: start: 20130626
  2. ATGAM [Suspect]
     Dosage: 40 MG/KG, DAILY
     Route: 042
     Dates: end: 20130629
  3. CICLOSPORIN [Concomitant]
     Indication: BONE MARROW FAILURE
     Dosage: 5 MG/KG, DAILY
  4. LUMIGAN [Concomitant]
  5. LEVOCETIRIZINE [Concomitant]
  6. DEDROGYL [Concomitant]
  7. PILOCARPINE [Concomitant]
  8. WELLVONE [Concomitant]
  9. POLARAMINE [Concomitant]
     Indication: PREMEDICATION
  10. PARACETAMOL [Concomitant]
     Indication: PREMEDICATION
  11. HYDROCORTISONE [Concomitant]
     Indication: PREMEDICATION

REACTIONS (4)
  - Respiratory distress [Recovered/Resolved]
  - Pyrexia [Recovered/Resolved]
  - Hypotension [Recovered/Resolved]
  - Pseudomonal sepsis [Recovered/Resolved]
